FAERS Safety Report 21107095 (Version 2)
Quarter: 2022Q3

REPORT INFORMATION
  Report Type: Report from Study
  Country: PL (occurrence: PL)
  Receive Date: 20220720
  Receipt Date: 20220808
  Transmission Date: 20221027
  Serious: Yes (Hospitalization)
  Sender: FDA-Public Use
  Company Number: PL-JNJFOC-20220733543

PATIENT
  Age: 62 Year
  Sex: Male
  Weight: 79 kg

DRUGS (8)
  1. AMIVANTAMAB [Suspect]
     Active Substance: AMIVANTAMAB
     Indication: Non-small cell lung cancer
     Route: 065
  2. CARBOPLATIN [Suspect]
     Active Substance: CARBOPLATIN
     Indication: Non-small cell lung cancer
     Route: 065
  3. PEMETREXED [Suspect]
     Active Substance: PEMETREXED
     Indication: Non-small cell lung cancer
     Route: 065
  4. FOLIK [Concomitant]
     Indication: Premedication
     Route: 048
     Dates: start: 20220504
  5. FLUCONAZOLE [Concomitant]
     Active Substance: FLUCONAZOLE
     Indication: Stomatitis
     Route: 048
     Dates: start: 20220512
  6. KLINDACIN T [Concomitant]
     Indication: Rash
     Dosage: DOSE: ^1^
     Route: 061
     Dates: start: 20220519
  7. HYDROCORTISONE [Concomitant]
     Active Substance: HYDROCORTISONE
     Indication: Rash
     Dosage: DOSE: ^1^
     Route: 061
     Dates: start: 20220519
  8. DOXYCYCLINE [Concomitant]
     Active Substance: DOXYCYCLINE
     Indication: Rash
     Route: 048
     Dates: start: 20220620

REACTIONS (1)
  - Dehydration [Recovered/Resolved]

NARRATIVE: CASE EVENT DATE: 20220628
